FAERS Safety Report 24117908 (Version 1)
Quarter: 2024Q3

REPORT INFORMATION
  Report Type: Spontaneous
  Country: US (occurrence: None)
  Receive Date: 20240722
  Receipt Date: 20240722
  Transmission Date: 20241016
  Serious: Yes (Hospitalization, Other)
  Sender: UNICHEM
  Company Number: US-Unichem Pharmaceuticals (USA) Inc-UCM202407-000879

PATIENT
  Age: 41 Year
  Sex: Male

DRUGS (1)
  1. METFORMIN HYDROCHLORIDE [Suspect]
     Active Substance: METFORMIN HYDROCHLORIDE
     Indication: Type 2 diabetes mellitus
     Dosage: UNKNOWN

REACTIONS (6)
  - Gastroenteritis [Unknown]
  - Acute kidney injury [Unknown]
  - Vitamin B1 deficiency [Recovered/Resolved]
  - Shock [Unknown]
  - Lactic acidosis [Unknown]
  - Toxicity to various agents [Unknown]
